FAERS Safety Report 6848233-9 (Version None)
Quarter: 2010Q3

REPORT INFORMATION
  Report Type: 
  Country: None (occurrence: None)
  Receive Date: 20100716
  Receipt Date: 20100706
  Transmission Date: 20110219
  Serious: Yes (Hospitalization)
  Sender: FDA-Public Use
  Company Number: JP-PFIZER INC-2010084888

PATIENT
  Age: 33 Year
  Sex: Female

DRUGS (7)
  1. ADRIACIN [Suspect]
     Indication: BREAST CANCER
     Dosage: 50 MG/M2, IJ
     Dates: start: 20100302, end: 20100622
  2. CYCLOPHOSPHAMIDE [Suspect]
     Indication: BREAST CANCER
     Dosage: 500 MG/M2, IJ
     Dates: start: 20100302, end: 20100622
  3. TAXOTERE [Suspect]
     Indication: BREAST CANCER
     Dosage: 75 MG/M2, IJ
     Dates: start: 20100302, end: 20100622
  4. KRN125 [Concomitant]
     Dosage: 1.8 MG, UNK
     Route: 058
     Dates: start: 20100303, end: 20100623
  5. DEPAS [Concomitant]
     Dosage: 0.5 MG, UNK
     Route: 048
     Dates: start: 20100420
  6. PRIMPERAN TAB [Concomitant]
     Dosage: 5 MG, 3X/DAY
     Route: 048
     Dates: start: 20100622
  7. NOVAMIN [Concomitant]
     Dosage: 5 MG, 3X/DAY
     Route: 048
     Dates: start: 20100622

REACTIONS (1)
  - PNEUMONIA [None]
